FAERS Safety Report 6029613-0 (Version None)
Quarter: 2009Q1

REPORT INFORMATION
  Report Type: 
  Country: None (occurrence: None)
  Receive Date: 20090107
  Receipt Date: 20080829
  Transmission Date: 20090719
  Serious: No
  Sender: FDA-Public Use
  Company Number: US-ABBOTT-08P-163-0473235-00

PATIENT
  Age: 49 Year
  Sex: Female
  Weight: 50.848 kg

DRUGS (2)
  1. VICODIN ES [Suspect]
     Indication: TOOTHACHE
     Route: 048
     Dates: start: 20080401
  2. VICODIN ES [Suspect]
     Dates: start: 20080827, end: 20080827

REACTIONS (1)
  - DRUG INEFFECTIVE [None]
